FAERS Safety Report 5833096-0 (Version None)
Quarter: 2008Q3

REPORT INFORMATION
  Report Type: 
  Country: None (occurrence: None)
  Receive Date: 20080801
  Receipt Date: 20080801
  Transmission Date: 20090109
  Serious: Yes (Hospitalization)
  Sender: FDA-Public Use
  Company Number: None

PATIENT
  Sex: Female
  Weight: 87.5 kg

DRUGS (4)
  1. CISPLATIN [Suspect]
     Dosage: 95 MG
  2. DOXORUBICIN HYDROCHLORIDE [Suspect]
     Dosage: 86 MG
  3. TAXOL [Suspect]
     Dosage: 304 MG
  4. NEULASTA [Suspect]
     Dosage: 6 MG

REACTIONS (7)
  - ASTHENIA [None]
  - DYSPEPSIA [None]
  - HYPOAESTHESIA [None]
  - HYPOKALAEMIA [None]
  - NAUSEA [None]
  - NEUTROPHIL COUNT DECREASED [None]
  - PARAESTHESIA [None]
